FAERS Safety Report 16627283 (Version 3)
Quarter: 2019Q3

REPORT INFORMATION
  Report Type: Report from Study
  Country: BR (occurrence: BR)
  Receive Date: 20190724
  Receipt Date: 20190808
  Transmission Date: 20191004
  Serious: Yes (Hospitalization, Other)
  Sender: FDA-Public Use
  Company Number: PHHY2019BR142316

PATIENT
  Age: 58 Year
  Sex: Female
  Weight: 48 kg

DRUGS (3)
  1. ATORVASTATIN CALCIUM. [Suspect]
     Active Substance: ATORVASTATIN CALCIUM
     Indication: BLOOD CHOLESTEROL INCREASED
     Dosage: 1 DF, UNK
     Route: 048
     Dates: start: 201903
  2. ENTRESTO [Suspect]
     Active Substance: SACUBITRIL\VALSARTAN
     Indication: CARDIAC FAILURE
     Dosage: 2 DF, (SACUBITRIL 49 MG/ VALSARTAN 51 MG) QD
     Route: 048
     Dates: start: 2017
  3. ATORVASTATIN [Concomitant]
     Active Substance: ATORVASTATIN
     Indication: BLOOD CHOLESTEROL INCREASED
     Dosage: 1 DF, QD (AT NIGHT)
     Route: 048
     Dates: start: 201903

REACTIONS (22)
  - Diabetes mellitus [Unknown]
  - Myocardial infarction [Recovered/Resolved]
  - Anxiety [Recovered/Resolved]
  - Blood cholesterol increased [Recovering/Resolving]
  - Tachycardia [Unknown]
  - Retinopathy [Not Recovered/Not Resolved]
  - Cardiomegaly [Unknown]
  - Nausea [Recovering/Resolving]
  - Abdominal discomfort [Recovered/Resolved]
  - Visual impairment [Not Recovered/Not Resolved]
  - Anaemia [Not Recovered/Not Resolved]
  - Vitamin D decreased [Not Recovered/Not Resolved]
  - Cardiac disorder [Unknown]
  - Cold sweat [Recovered/Resolved]
  - Vomiting [Unknown]
  - Hypertension [Recovered/Resolved]
  - Malaise [Recovered/Resolved]
  - Fatigue [Unknown]
  - Cardiac murmur [Not Recovered/Not Resolved]
  - Upper limb fracture [Not Recovered/Not Resolved]
  - Pallor [Recovered/Resolved]
  - Arterial disorder [Unknown]

NARRATIVE: CASE EVENT DATE: 201709
